FAERS Safety Report 20369558 (Version 1)
Quarter: 2022Q1

REPORT INFORMATION
  Report Type: Spontaneous
  Country: US (occurrence: US)
  Receive Date: 20220124
  Receipt Date: 20220124
  Transmission Date: 20220423
  Serious: Yes (Other)
  Sender: FDA-Public Use
  Company Number: US-AMERICAN REGENT INC-2022000133

PATIENT
  Age: 56 Year
  Sex: Female
  Weight: 78.5 kg

DRUGS (7)
  1. VENOFER [Suspect]
     Active Substance: IRON SUCROSE
     Indication: Product used for unknown indication
     Dosage: UNK
     Dates: end: 2021
  2. MIRCERA [Suspect]
     Active Substance: METHOXY POLYETHYLENE GLYCOL-EPOETIN BETA
     Indication: Product used for unknown indication
     Dosage: 30 MCG, 1 IN 2 WK
     Dates: start: 20201117
  3. MIRCERA [Suspect]
     Active Substance: METHOXY POLYETHYLENE GLYCOL-EPOETIN BETA
     Dosage: 30 MCG
     Dates: start: 20210727, end: 20210727
  4. MIRCERA [Suspect]
     Active Substance: METHOXY POLYETHYLENE GLYCOL-EPOETIN BETA
     Dosage: 30 MCG
     Dates: start: 20210811, end: 20210811
  5. MIRCERA [Suspect]
     Active Substance: METHOXY POLYETHYLENE GLYCOL-EPOETIN BETA
     Dosage: 30 MCG, 1 IN 2 WK (DOSE NUMBER 15 AND DOSE CATEGORY 11-15)
     Dates: start: 20210824, end: 20210824
  6. HECTOROL [Concomitant]
     Active Substance: DOXERCALCIFEROL
     Indication: Product used for unknown indication
     Dosage: UNK
     Route: 065
  7. CARVEDILOL [Concomitant]
     Active Substance: CARVEDILOL
     Indication: Product used for unknown indication
     Dosage: 12.5 MILLIGRAM
     Route: 048

REACTIONS (1)
  - Drug hypersensitivity [Recovered/Resolved]

NARRATIVE: CASE EVENT DATE: 20210727
